FAERS Safety Report 14776416 (Version 7)
Quarter: 2021Q2

REPORT INFORMATION
  Report Type: Spontaneous
  Country: US (occurrence: US)
  Receive Date: 20180418
  Receipt Date: 20210428
  Transmission Date: 20210716
  Serious: Yes (Hospitalization, Other)
  Sender: FDA-Public Use
  Company Number: US-SA-2016SA055118

PATIENT
  Age: 68 Year
  Sex: Male

DRUGS (1)
  1. CAPRELSA [Suspect]
     Active Substance: VANDETANIB
     Indication: THYROID CANCER
     Dosage: 300 MG,QD
     Route: 048
     Dates: start: 20210210

REACTIONS (13)
  - Hospice care [Unknown]
  - Blood creatinine abnormal [Unknown]
  - Blood calcitonin increased [Unknown]
  - Vertebral lesion [Unknown]
  - Dysphagia [Unknown]
  - Gene mutation [Unknown]
  - Blood magnesium decreased [Unknown]
  - Pneumonia [Unknown]
  - Blood calcium decreased [Not Recovered/Not Resolved]
  - Neoplasm malignant [Unknown]
  - Blood pressure fluctuation [Unknown]
  - Therapeutic product effect incomplete [Unknown]
  - Epistaxis [Recovered/Resolved]

NARRATIVE: CASE EVENT DATE: 201803
